FAERS Safety Report 12708701 (Version 3)
Quarter: 2016Q4

REPORT INFORMATION
  Report Type: Spontaneous
  Country: ZA (occurrence: ZA)
  Receive Date: 20160901
  Receipt Date: 20161102
  Transmission Date: 20170207
  Serious: Yes (Hospitalization)
  Sender: FDA-Public Use
  Company Number: ZA-009507513-1608ZAF015123

PATIENT
  Sex: Female

DRUGS (1)
  1. IMPLANON [Suspect]
     Active Substance: ETONOGESTREL
     Dosage: UNK
     Route: 059
     Dates: start: 20140430, end: 2016

REACTIONS (8)
  - Device difficult to use [Recovered/Resolved]
  - Muscle spasms [Unknown]
  - Fall [Unknown]
  - Vaginal haemorrhage [Recovered/Resolved]
  - Chest pain [Recovered/Resolved]
  - Complication associated with device [Recovered/Resolved]
  - Breast tenderness [Recovered/Resolved]
  - Amenorrhoea [Recovered/Resolved]

NARRATIVE: CASE EVENT DATE: 201607
